FAERS Safety Report 8780646 (Version 1)
Quarter: 2012Q4

REPORT INFORMATION
  Report Type: 
  Country: US (occurrence: US)
  Receive Date: 20120913
  Receipt Date: 20120913
  Transmission Date: 20130627
  Serious: Yes (Other)
  Sender: FDA-Public Use
  Company Number: US-ELI_LILLY_AND_COMPANY-US201209001705

PATIENT
  Age: 68 Year
  Sex: Male

DRUGS (2)
  1. AXIRON [Suspect]
     Indication: BLOOD TESTOSTERONE DECREASED
     Dosage: 30 mg twice daily
  2. AXIRON [Suspect]
     Dosage: 30 mg, qd

REACTIONS (2)
  - Weight increased [Unknown]
  - Off label use [Recovered/Resolved]
